FAERS Safety Report 12270154 (Version 1)
Quarter: 2016Q2

REPORT INFORMATION
  Report Type: Not Available
  Country: FR (occurrence: FR)
  Receive Date: 20160415
  Receipt Date: 20160415
  Transmission Date: 20160815
  Serious: Yes (Hospitalization)
  Sender: FDA-Public Use
  Company Number: FR-BEH-2016061397

PATIENT
  Age: 28 Year
  Sex: Female

DRUGS (2)
  1. ANTIBIOTICS [Concomitant]
     Active Substance: UNSPECIFIED INGREDIENT
     Indication: UPPER RESPIRATORY TRACT INFECTION
  2. PRIVIGEN [Suspect]
     Active Substance: HUMAN IMMUNOGLOBULIN G
     Indication: IMMUNODEFICIENCY
     Dosage: SINGLE DOSE
     Route: 042
     Dates: start: 20160229, end: 20160229

REACTIONS (13)
  - Radiculitis brachial [Recovered/Resolved]
  - Body temperature increased [Recovered/Resolved]
  - Meningitis aseptic [Recovered/Resolved]
  - Tension headache [Recovered/Resolved]
  - Nausea [Recovered/Resolved]
  - Cervical radiculopathy [Recovered/Resolved]
  - Headache [Recovered/Resolved]
  - Phonophobia [Recovered/Resolved]
  - Musculoskeletal stiffness [Recovered/Resolved]
  - Asthenia [Recovered/Resolved]
  - Radiculopathy [Recovered/Resolved]
  - Chills [Recovered/Resolved]
  - Pain in extremity [Recovered/Resolved]

NARRATIVE: CASE EVENT DATE: 20160229
